FAERS Safety Report 6611295-8 (Version None)
Quarter: 2010Q1

REPORT INFORMATION
  Report Type: 
  Country: None (occurrence: None)
  Receive Date: 20100302
  Receipt Date: 20100302
  Transmission Date: 20100710
  Serious: Yes (Hospitalization)
  Sender: FDA-Public Use
  Company Number: None

PATIENT
  Age: 80 Year
  Sex: Female
  Weight: 89.5 kg

DRUGS (11)
  1. ECOTRIN [Suspect]
     Indication: CORONARY ANGIOPLASTY
     Dosage: 325MG DAILY PO RECENTLY (RESTARTED) 1 WK
     Route: 048
  2. ECOTRIN [Suspect]
     Indication: CORONARY ARTERY DISEASE
     Dosage: 325MG DAILY PO RECENTLY (RESTARTED) 1 WK
     Route: 048
  3. LEVOXYL [Concomitant]
  4. DILTIAZEM HCL [Concomitant]
  5. SIMVASTIN [Concomitant]
  6. DETROL LA [Concomitant]
  7. XANAX [Concomitant]
  8. NYSTOP [Concomitant]
  9. METFORMIN [Concomitant]
  10. FOSAMAX [Concomitant]
  11. KETOCONAZOLE [Concomitant]

REACTIONS (2)
  - BLOOD PRESSURE SYSTOLIC INCREASED [None]
  - RECTAL HAEMORRHAGE [None]
